FAERS Safety Report 10081229 (Version 1)
Quarter: 2014Q2

REPORT INFORMATION
  Report Type: Report from Study
  Country: US (occurrence: US)
  Receive Date: 20140416
  Receipt Date: 20140416
  Transmission Date: 20141212
  Serious: Yes (Disabling, Other)
  Sender: FDA-Public Use
  Company Number: US-ALEXION PHARMACEUTICALS INC.-A200901263

PATIENT
  Age: 33 Year
  Sex: Female

DRUGS (1)
  1. SOLIRIS [Suspect]
     Indication: PAROXYSMAL NOCTURNAL HAEMOGLOBINURIA
     Route: 042

REACTIONS (4)
  - Cardiac disorder [Unknown]
  - Asthenia [Unknown]
  - Abdominal pain [Unknown]
  - Hypersensitivity [Unknown]
